FAERS Safety Report 7992356-8 (Version None)
Quarter: 2011Q4

REPORT INFORMATION
  Report Type: 
  Country: None (occurrence: None)
  Receive Date: 20111219
  Receipt Date: 20101118
  Transmission Date: 20120403
  Serious: No
  Sender: FDA-Public Use
  Company Number: US-ASTRAZENECA-2010SE55100

PATIENT
  Age: 23726 Day
  Sex: Female
  Weight: 84.8 kg

DRUGS (9)
  1. PLAVIX [Concomitant]
  2. CRESTOR [Suspect]
     Route: 048
     Dates: start: 20100801, end: 20100901
  3. CRESTOR [Suspect]
     Indication: BLOOD CHOLESTEROL INCREASED
     Route: 048
     Dates: start: 20100801, end: 20100801
  4. METFORMIN HCL [Concomitant]
  5. CRESTOR [Suspect]
     Route: 048
     Dates: start: 20100801, end: 20100901
  6. ASPIRIN [Concomitant]
  7. CRESTOR [Suspect]
     Indication: BLOOD TRIGLYCERIDES INCREASED
     Route: 048
     Dates: start: 20100801, end: 20100801
  8. LISINOPRIL [Concomitant]
  9. BYETA [Concomitant]

REACTIONS (3)
  - ABASIA [None]
  - MYALGIA [None]
  - DRUG DOSE OMISSION [None]
